FAERS Safety Report 5802989-2 (Version None)
Quarter: 2008Q3

REPORT INFORMATION
  Report Type: 
  Country: None (occurrence: None)
  Receive Date: 20080708
  Receipt Date: 20080704
  Transmission Date: 20090109
  Serious: Yes (Life-Threatening)
  Sender: FDA-Public Use
  Company Number: JP-ASTRAZENECA-2008AP04967

PATIENT
  Age: 58 Year
  Sex: Male

DRUGS (1)
  1. XYLOCAINE [Suspect]
     Route: 041
     Dates: start: 20080621, end: 20080621

REACTIONS (2)
  - BLOOD PRESSURE INCREASED [None]
  - TACHYCARDIA [None]
